FAERS Safety Report 10881552 (Version 1)
Quarter: 2015Q1

REPORT INFORMATION
  Report Type: Spontaneous
  Country: US (occurrence: US)
  Receive Date: 20150303
  Receipt Date: 20150303
  Transmission Date: 20150721
  Serious: Yes (Other)
  Sender: FDA-Public Use
  Company Number: US-TEVA-543495USA

PATIENT
  Sex: Male

DRUGS (1)
  1. COPAXONE [Suspect]
     Active Substance: GLATIRAMER ACETATE
     Indication: MULTIPLE SCLEROSIS
     Dosage: UNKNOWN FORM STRENGTH

REACTIONS (7)
  - Multiple sclerosis [Unknown]
  - Neuropathy peripheral [Unknown]
  - Injection site pain [Unknown]
  - Muscle spasms [Unknown]
  - Oral pain [Unknown]
  - Glossodynia [Unknown]
  - Candida infection [Unknown]

NARRATIVE: CASE EVENT DATE: 2013
